FAERS Safety Report 5825130-9 (Version None)
Quarter: 2008Q3

REPORT INFORMATION
  Report Type: 
  Country: None (occurrence: None)
  Receive Date: 20080729
  Receipt Date: 20080717
  Transmission Date: 20090109
  Serious: Yes (Hospitalization)
  Sender: FDA-Public Use
  Company Number: JP-JNJFOC-20080704788

PATIENT
  Age: 66 Year
  Sex: Male

DRUGS (5)
  1. REMICADE [Suspect]
     Dosage: 10TH DOSE
     Route: 042
  2. REMICADE [Suspect]
     Dosage: 8 INFUSIONS, DATES UNSPECIFIED
     Route: 042
  3. REMICADE [Suspect]
     Indication: RHEUMATOID ARTHRITIS
     Route: 042
  4. RHEUMATREX [Suspect]
     Indication: RHEUMATOID ARTHRITIS
     Route: 048
  5. ADRENAL HORMONE PREPARATION [Suspect]
     Indication: DRUG USE FOR UNKNOWN INDICATION

REACTIONS (1)
  - TUBERCULOSIS [None]
